FAERS Safety Report 11716644 (Version 2)
Quarter: 2015Q4

REPORT INFORMATION
  Report Type: Spontaneous
  Country: US (occurrence: US)
  Receive Date: 20151104
  Receipt Date: 20151110
  Transmission Date: 20160304
  Serious: No
  Sender: FDA-Public Use
  Company Number: US-ELI_LILLY_AND_COMPANY-US201106001868

PATIENT
  Age: 74 Year
  Sex: Female

DRUGS (4)
  1. FORTEO [Suspect]
     Active Substance: TERIPARATIDE
     Dosage: 20 UG, QD
     Route: 058
  2. LIPITOR [Concomitant]
     Active Substance: ATORVASTATIN CALCIUM
     Dosage: 40 MG, QD
     Dates: end: 20120719
  3. FORTEO [Suspect]
     Active Substance: TERIPARATIDE
     Indication: OSTEOPOROSIS
     Dosage: 20 UG, QD
     Route: 058
     Dates: start: 20110216
  4. FORTEO [Suspect]
     Active Substance: TERIPARATIDE
     Dosage: 20 UG, QD

REACTIONS (12)
  - Blood test abnormal [Unknown]
  - Muscular weakness [Not Recovered/Not Resolved]
  - Fatigue [Unknown]
  - Blood potassium decreased [Unknown]
  - Abdominal pain upper [Unknown]
  - Depressed mood [Unknown]
  - Liver disorder [Unknown]
  - Nasopharyngitis [Unknown]
  - Asthenia [Recovering/Resolving]
  - Malaise [Not Recovered/Not Resolved]
  - Diarrhoea [Unknown]
  - Fall [Recovered/Resolved]

NARRATIVE: CASE EVENT DATE: 201206
